FAERS Safety Report 7946142 (Version 3)
Quarter: 2012Q4

REPORT INFORMATION
  Report Type: Report from Study
  Country: HU (occurrence: HU)
  Receive Date: 20110516
  Receipt Date: 20120831
  Transmission Date: 20130627
  Serious: Yes (Death, Hospitalization)
  Sender: FDA-Public Use
  Company Number: HU-ABBOTT-11P-076-0725251-00

PATIENT
  Age: 72 Year
  Sex: Female
  Weight: 68 kg

DRUGS (1)
  1. ZEMPLAR [Suspect]
     Indication: RENAL FAILURE CHRONIC
     Dosage: Dialysis
     Route: 042
     Dates: start: 20110208, end: 20110509

REACTIONS (5)
  - Sepsis [Fatal]
  - Circulatory collapse [Fatal]
  - Arterial occlusive disease [Not Recovered/Not Resolved]
  - Gangrene [Not Recovered/Not Resolved]
  - Angiopathy [Unknown]
